FAERS Safety Report 12788570 (Version 1)
Quarter: 2016Q3

REPORT INFORMATION
  Report Type: Spontaneous
  Country: US (occurrence: US)
  Receive Date: 20160928
  Receipt Date: 20160928
  Transmission Date: 20161109
  Serious: Yes (Hospitalization)
  Sender: FDA-Public Use
  Company Number: US-NAPPMUNDI-USA-2016-0133819

PATIENT
  Age: 51 Year
  Sex: Female

DRUGS (1)
  1. OXYCODONE HYDROCHLORIDE (SIMILAR TO NDA 22-272) [Suspect]
     Active Substance: OXYCODONE HYDROCHLORIDE
     Indication: ARTHRALGIA
     Route: 048

REACTIONS (6)
  - Confusional state [Recovered/Resolved]
  - Acute kidney injury [Unknown]
  - Dehydration [Unknown]
  - Vomiting [Unknown]
  - Nausea [Unknown]
  - Joint swelling [Unknown]
